FAERS Safety Report 23595436 (Version 2)
Quarter: 2024Q1

REPORT INFORMATION
  Report Type: Spontaneous
  Country: US (occurrence: US)
  Receive Date: 20240305
  Receipt Date: 20240318
  Transmission Date: 20240410
  Serious: Yes (Hospitalization)
  Sender: FDA-Public Use
  Company Number: US-MYLANLABS-2024M1019936

PATIENT
  Age: 60 Year
  Sex: Male

DRUGS (9)
  1. LITHIUM [Interacting]
     Active Substance: LITHIUM
     Indication: Antipsychotic therapy
     Dosage: 600 MILLIGRAM, HS
     Route: 065
  2. LITHIUM [Interacting]
     Active Substance: LITHIUM
     Indication: Bipolar I disorder
     Dosage: 900 MILLIGRAM, HS
     Route: 065
  3. LITHIUM [Interacting]
     Active Substance: LITHIUM
     Dosage: 600 MILLIGRAM, HS
     Route: 065
  4. ARIPIPRAZOLE [Interacting]
     Active Substance: ARIPIPRAZOLE
     Indication: Antipsychotic therapy
     Dosage: 300 MILLIGRAM, MONTHLY, LONG ACTING INJECTABLE
     Route: 065
  5. ARIPIPRAZOLE [Interacting]
     Active Substance: ARIPIPRAZOLE
     Indication: Bipolar I disorder
     Dosage: 400 MILLIGRAM LONG ACTING INJECTABLE
     Route: 065
  6. ARIPIPRAZOLE [Interacting]
     Active Substance: ARIPIPRAZOLE
     Indication: Bipolar I disorder
     Dosage: 10 MILLIGRAM
     Route: 048
  7. ARIPIPRAZOLE [Interacting]
     Active Substance: ARIPIPRAZOLE
     Dosage: 20 MILLIGRAM
     Route: 048
  8. ARIPIPRAZOLE [Interacting]
     Active Substance: ARIPIPRAZOLE
     Dosage: 30 MILLIGRAM
     Route: 048
  9. SERTRALINE [Suspect]
     Active Substance: SERTRALINE HYDROCHLORIDE
     Indication: Bipolar I disorder
     Dosage: INCREASED INCREMENTALLY
     Route: 065

REACTIONS (6)
  - Toxicity to various agents [Recovered/Resolved]
  - Neuroleptic malignant syndrome [Recovered/Resolved]
  - Drug interaction [Recovered/Resolved]
  - Serotonin syndrome [Unknown]
  - Akathisia [Unknown]
  - Off label use [Unknown]
